FAERS Safety Report 24282756 (Version 2)
Quarter: 2024Q3

REPORT INFORMATION
  Report Type: Spontaneous
  Country: US (occurrence: US)
  Receive Date: 20240904
  Receipt Date: 20240923
  Transmission Date: 20241017
  Serious: Yes (Hospitalization, Other)
  Sender: PFIZER
  Company Number: US-PFIZER INC-202400248464

PATIENT
  Age: 82 Year
  Sex: Male
  Weight: 80.7 kg

DRUGS (21)
  1. INLYTA [Suspect]
     Active Substance: AXITINIB
     Indication: Metastatic renal cell carcinoma
     Dosage: 3 MG, 2X/DAY
     Route: 048
     Dates: start: 20240710, end: 202408
  2. INLYTA [Suspect]
     Active Substance: AXITINIB
     Dosage: 1 TABLET EVERY 12 HOURS; ONLY TOOK 5MG FOR 2-3 DAYS
     Route: 048
     Dates: start: 202408, end: 202408
  3. ASPIRIN [Concomitant]
     Active Substance: ASPIRIN
     Dosage: NIGHTLY
     Route: 048
  4. LIPITOR [Concomitant]
     Active Substance: ATORVASTATIN CALCIUM
     Dosage: NIGHTLY
     Route: 048
  5. COENZYME Q10 [Concomitant]
     Active Substance: DIETARY SUPPLEMENT\UBIDECARENONE
     Dosage: 10 MG, DAILY
     Route: 048
  6. ALLEGRA [Concomitant]
     Active Substance: FEXOFENADINE HYDROCHLORIDE
     Dosage: 180 MG, DAILY
     Route: 048
  7. LIDEX [Concomitant]
     Active Substance: FLUOCINONIDE
     Indication: Rash
     Dosage: 1 APPLICATION (2 TIMES DAILY)
     Route: 061
  8. HYDROCORTISONE [Concomitant]
     Active Substance: HYDROCORTISONE\HYDROCORTISONE ACETATE
     Indication: Rash
     Dosage: 1 APPLICATION (2 TIMES DAILY)
     Route: 061
  9. IMDUR [Concomitant]
     Active Substance: ISOSORBIDE MONONITRATE
     Dosage: 60 MG, DAILY
     Route: 048
  10. TOPROL XL [Concomitant]
     Active Substance: METOPROLOL SUCCINATE
     Dosage: 25 MG, DAILY
     Route: 048
  11. ZOFRAN [Concomitant]
     Active Substance: ONDANSETRON HYDROCHLORIDE
     Indication: Nausea
     Dosage: EVERY 6 (SIX) HOURS
     Route: 048
  12. ZOFRAN [Concomitant]
     Active Substance: ONDANSETRON HYDROCHLORIDE
     Indication: Vomiting
  13. PROTONIX [Concomitant]
     Active Substance: PANTOPRAZOLE SODIUM
     Dosage: BEFORE BREAKFAST
     Route: 048
  14. COMPAZINE [Concomitant]
     Active Substance: PROCHLORPERAZINE MALEATE
     Indication: Nausea
     Dosage: EVERY 6 (SIX) HOURS
     Route: 048
  15. RANEXA [Concomitant]
     Active Substance: RANOLAZINE
     Dosage: 500 MG, 2X/DAY
     Route: 048
  16. REQUIP [Concomitant]
     Active Substance: ROPINIROLE HYDROCHLORIDE
     Dosage: TAKE 2 TABLETS EVERY MORNING, 1 TABLET NIGHTLY
     Route: 048
  17. REQUIP [Concomitant]
     Active Substance: ROPINIROLE HYDROCHLORIDE
     Dosage: 1 MG, DAILY
     Route: 048
  18. VITAMIN B12 [Concomitant]
     Active Substance: CYANOCOBALAMIN
     Dosage: 500 UG, DAILY
     Route: 048
  19. VITAMIN C [Concomitant]
     Active Substance: ASCORBIC ACID
     Dosage: 500 MG, DAILY
     Route: 048
  20. VITAMIN D3 [Concomitant]
     Active Substance: CHOLECALCIFEROL
     Dosage: 2000 IU, 2X/DAY
     Route: 048
  21. VITAMIN E-400 [Concomitant]
     Dosage: 180 MG, DAILY
     Route: 048

REACTIONS (4)
  - Cardiac failure congestive [Recovered/Resolved]
  - Blood pressure increased [Recovered/Resolved]
  - Dyspnoea [Recovered/Resolved]
  - Cardiac disorder [Unknown]

NARRATIVE: CASE EVENT DATE: 20240101
